FAERS Safety Report 5341790-3 (Version None)
Quarter: 2007Q2

REPORT INFORMATION
  Report Type: 
  Country: None (occurrence: None)
  Receive Date: 20070529
  Receipt Date: 20070529
  Transmission Date: 20071010
  Serious: Yes (Hospitalization)
  Sender: FDA-Public Use
  Company Number: None

PATIENT
  Age: 50 Year
  Sex: Male
  Weight: 71.2147 kg

DRUGS (12)
  1. RAPAMUNE [Suspect]
     Indication: IMMUNOSUPPRESSION
     Dosage: 4MG DAILY PO
     Route: 048
     Dates: start: 20070130
  2. CALCINEURIN [Concomitant]
  3. MYFORTIC [Concomitant]
  4. PROGRAF [Concomitant]
  5. RAPAMUNE [Concomitant]
  6. ALBUTEROL SULATE [Concomitant]
  7. AMLODIPINE [Concomitant]
  8. ATORVASTATIN [Concomitant]
  9. AZITHROMYCIN [Concomitant]
  10. CEFTRIAXONE SODIUM [Concomitant]
  11. DARBEPOITIN ALFA [Concomitant]
  12. FAMOTIDINE [Concomitant]

REACTIONS (1)
  - PNEUMONITIS [None]
